FAERS Safety Report 15271622 (Version 2)
Quarter: 2018Q3

REPORT INFORMATION
  Report Type: Report from Study
  Country: MX (occurrence: MX)
  Receive Date: 20180813
  Receipt Date: 20180831
  Transmission Date: 20181010
  Serious: Yes (Hospitalization, Other)
  Sender: FDA-Public Use
  Company Number: PHHY2018MX069224

PATIENT
  Age: 83 Year
  Sex: Female
  Weight: 56 kg

DRUGS (4)
  1. RIVOTRIL [Concomitant]
     Active Substance: CLONAZEPAM
     Indication: SOMNOLENCE
     Dosage: 0.5 DF, QD (AT NIGHT)
     Route: 048
  2. EXFORGE [Suspect]
     Active Substance: AMLODIPINE BESYLATE\VALSARTAN
     Indication: HYPERTENSION
     Dosage: 1 DF,  (AMLODIPINE 5 MG, VALSARTAN 160 MG )QD
     Route: 048
     Dates: start: 2009
  3. EXFORGE [Suspect]
     Active Substance: AMLODIPINE BESYLATE\VALSARTAN
     Dosage: 1 DF, (AMLODIPINE 10 MG, VALSARTAN 160 MG) QD
     Route: 048
  4. NOOTROPIL [Concomitant]
     Active Substance: PIRACETAM
     Indication: MEMORY IMPAIRMENT
     Dosage: 1 DF, QD (IN THE MORNING)
     Route: 048

REACTIONS (10)
  - Concomitant disease aggravated [Not Recovered/Not Resolved]
  - Deafness unilateral [Unknown]
  - Blood pressure increased [Unknown]
  - Nervous system disorder [Unknown]
  - Neck pain [Recovered/Resolved]
  - Chest pain [Recovered/Resolved]
  - Hepatic cancer [Recovered/Resolved]
  - Memory impairment [Not Recovered/Not Resolved]
  - Brain neoplasm benign [Not Recovered/Not Resolved]
  - Pain in extremity [Recovered/Resolved]

NARRATIVE: CASE EVENT DATE: 201806
